FAERS Safety Report 16838495 (Version 1)
Quarter: 2019Q3

REPORT INFORMATION
  Report Type: Spontaneous
  Country: US (occurrence: US)
  Receive Date: 20190731
  Receipt Date: 20190731
  Transmission Date: 20191005
  Serious: No
  Sender: FDA-Public Use
  Company Number: None

PATIENT

DRUGS (2)
  1. CARVEDILOL. [Suspect]
     Active Substance: CARVEDILOL
     Route: 048
  2. CAPTOPRIL. [Suspect]
     Active Substance: CAPTOPRIL
     Route: 048

REACTIONS (3)
  - Product dispensing error [None]
  - Therapeutic product effect incomplete [None]
  - Wrong product administered [None]
